FAERS Safety Report 17008626 (Version 1)
Quarter: 2019Q4

REPORT INFORMATION
  Report Type: Spontaneous
  Country: US (occurrence: US)
  Receive Date: 20190929
  Receipt Date: 20190929
  Transmission Date: 20200122
  Serious: Yes (Hospitalization)
  Sender: FDA-Public Use
  Company Number: None

PATIENT
  Sex: Female

DRUGS (1)
  1. NEULASTA [Suspect]
     Active Substance: PEGFILGRASTIM
     Indication: BONE CANCER
     Dosage: ?          OTHER FREQUENCY:PER21DAYCYC;?
     Route: 058
     Dates: start: 20190329

REACTIONS (1)
  - Hospitalisation [None]
